FAERS Safety Report 5888778-1 (Version None)
Quarter: 2008Q3

REPORT INFORMATION
  Report Type: 
  Country: None (occurrence: None)
  Receive Date: 20080919
  Receipt Date: 20080911
  Transmission Date: 20090109
  Serious: Yes (Other)
  Sender: FDA-Public Use
  Company Number: DE-JNJFOC-20080800455

PATIENT
  Age: 72 Year
  Sex: Male

DRUGS (4)
  1. HALDOL [Suspect]
     Dosage: 5 TO 7 DROPS DAILY
     Route: 048
  2. HALDOL [Suspect]
     Dosage: 20 DROPS
     Route: 048
  3. HALDOL [Suspect]
     Dosage: 40 DROPS
     Route: 048
  4. HALDOL [Suspect]
     Indication: SCHIZOAFFECTIVE DISORDER
     Dosage: 13 DROPS
     Route: 048

REACTIONS (6)
  - BRADYCARDIA [None]
  - DIZZINESS [None]
  - DRUG DEPENDENCE [None]
  - FEAR OF DEATH [None]
  - HYPOTENSION [None]
  - SOMNOLENCE [None]
